FAERS Safety Report 6098773-8 (Version None)
Quarter: 2009Q1

REPORT INFORMATION
  Report Type: 
  Country: None (occurrence: None)
  Receive Date: 20090302
  Receipt Date: 20081223
  Transmission Date: 20090719
  Serious: Yes (Death, Other)
  Sender: FDA-Public Use
  Company Number: LT-PFIZER INC-2007053360

PATIENT

DRUGS (2)
  1. LAMOTRIGINE [Suspect]
     Indication: PARTIAL SEIZURES
     Route: 048
     Dates: start: 20070328, end: 20070601
  2. BLINDED PREGABALIN [Suspect]
     Indication: PARTIAL SEIZURES
     Route: 048
     Dates: start: 20070328, end: 20070601

REACTIONS (1)
  - DROWNING [None]
